FAERS Safety Report 7132253-3 (Version None)
Quarter: 2010Q4

REPORT INFORMATION
  Report Type: 
  Country: None (occurrence: None)
  Receive Date: 20101202
  Receipt Date: 20101118
  Transmission Date: 20110411
  Serious: Yes (Hospitalization)
  Sender: FDA-Public Use
  Company Number: PHHY2010FR79555

PATIENT
  Sex: Female

DRUGS (7)
  1. VOLTAREN [Suspect]
     Indication: BACK PAIN
     Dosage: UNK
     Route: 048
     Dates: start: 20100901, end: 20100901
  2. SYMBICORT [Concomitant]
  3. EUPHYLLINE [Concomitant]
  4. BRICANYL [Concomitant]
  5. LAROXYL [Concomitant]
  6. PROZAC [Concomitant]
  7. OGAST [Concomitant]

REACTIONS (5)
  - BACK PAIN [None]
  - DIVERTICULUM INTESTINAL [None]
  - HAEMOGLOBIN DECREASED [None]
  - PACKED RED BLOOD CELL TRANSFUSION [None]
  - RECTAL HAEMORRHAGE [None]
